FAERS Safety Report 5691518-2 (Version None)
Quarter: 2008Q2

REPORT INFORMATION
  Report Type: 
  Country: None (occurrence: None)
  Receive Date: 20080402
  Receipt Date: 20080325
  Transmission Date: 20081010
  Serious: Yes (Other)
  Sender: FDA-Public Use
  Company Number: PHHY2008GB03859

PATIENT
  Age: 13 Year
  Sex: Male

DRUGS (2)
  1. CARBAMAZEPINE [Suspect]
     Dosage: 200 MG, BID
  2. RISPERIDONE [Concomitant]
     Dosage: 3 MG, BID

REACTIONS (2)
  - PHARYNGOLARYNGEAL PAIN [None]
  - PYREXIA [None]
